FAERS Safety Report 25141187 (Version 4)
Quarter: 2025Q4

REPORT INFORMATION
  Report Type: Spontaneous
  Country: CL (occurrence: CL)
  Receive Date: 20250331
  Receipt Date: 20251007
  Transmission Date: 20260117
  Serious: Yes (Disabling)
  Sender: BIOMARIN
  Company Number: CL-BIOMARINAP-CL-2025-164902

PATIENT
  Age: 10 Year
  Sex: Male

DRUGS (2)
  1. VIMIZIM [Suspect]
     Active Substance: ELOSULFASE ALFA
     Indication: Mucopolysaccharidosis IV
     Dosage: UNK
  2. DESLORATADINE [Concomitant]
     Active Substance: DESLORATADINE
     Indication: Snoring

REACTIONS (5)
  - Motor dysfunction [Recovering/Resolving]
  - Limb discomfort [Recovering/Resolving]
  - Attention deficit hyperactivity disorder [Recovering/Resolving]
  - Cognitive disorder [Recovering/Resolving]
  - Distractibility [Recovering/Resolving]

NARRATIVE: CASE EVENT DATE: 20241218
